FAERS Safety Report 13115826 (Version 1)
Quarter: 2017Q1

REPORT INFORMATION
  Report Type: Spontaneous
  Country: GB (occurrence: US)
  Receive Date: 20170115
  Receipt Date: 20170115
  Transmission Date: 20170428
  Serious: Yes (Other)
  Sender: FDA-Public Use
  Company Number: US-DEXPHARM-20160089

PATIENT
  Age: 58 Year
  Sex: Female

DRUGS (1)
  1. DICLOFENAC SODIUM XR [Suspect]
     Active Substance: DICLOFENAC SODIUM

REACTIONS (2)
  - Rectal haemorrhage [Unknown]
  - Drug ineffective [None]
